FAERS Safety Report 8112503-7 (Version None)
Quarter: 2012Q1

REPORT INFORMATION
  Report Type: 
  Country: None (occurrence: None)
  Receive Date: 20120203
  Receipt Date: 20120120
  Transmission Date: 20120608
  Serious: Yes (Other)
  Sender: FDA-Public Use
  Company Number: SE-CELGENEUS-150-50794-12012104

PATIENT
  Sex: Male

DRUGS (15)
  1. LACTULOSE MEDA [Concomitant]
     Route: 048
  2. ALLOPURINOL [Concomitant]
     Route: 065
  3. LAXOBERAL [Concomitant]
     Route: 048
  4. TENORMIN [Concomitant]
  5. VIDAZA [Suspect]
     Route: 058
     Dates: start: 20100927, end: 20110305
  6. OMEPRAZOLE [Concomitant]
     Route: 065
  7. SIMVASTATIN [Concomitant]
     Route: 065
  8. ASPIRIN [Concomitant]
  9. LEVOTHYROXINE SODIUM [Concomitant]
  10. ATACAND [Concomitant]
  11. NAVOBAN [Concomitant]
  12. PREDNISOLONE [Concomitant]
     Route: 065
  13. PRIMPERAN TAB [Concomitant]
  14. MAXIDEX [Concomitant]
     Route: 047
  15. FINASTERID [Concomitant]
     Route: 065

REACTIONS (2)
  - PANNICULITIS [None]
  - FAT NECROSIS [None]
